FAERS Safety Report 19322362 (Version 1)
Quarter: 2021Q2

REPORT INFORMATION
  Report Type: Spontaneous
  Country: ES (occurrence: ES)
  Receive Date: 20210528
  Receipt Date: 20210528
  Transmission Date: 20210717
  Serious: Yes (Other)
  Sender: FDA-Public Use
  Company Number: ES-ORGANON-O2105ESP002041

PATIENT
  Age: 5 Year
  Sex: Male
  Weight: 18 kg

DRUGS (1)
  1. SINGULAIR [Suspect]
     Active Substance: MONTELUKAST SODIUM
     Indication: LARYNGITIS
     Dosage: UNK (ONE SACHET A DAY; 28 SACHETS)
     Route: 048
     Dates: start: 20200929, end: 20201204

REACTIONS (6)
  - Agitation [Recovered/Resolved]
  - Nightmare [Recovered/Resolved]
  - Aggression [Recovered/Resolved]
  - Irritability [Recovered/Resolved]
  - Abnormal behaviour [Recovered/Resolved]
  - Oversensing [Recovered/Resolved]

NARRATIVE: CASE EVENT DATE: 20201012
